FAERS Safety Report 11157623 (Version 1)
Quarter: 2015Q2

REPORT INFORMATION
  Report Type: Spontaneous
  Country: CA (occurrence: None)
  Receive Date: 20150601
  Receipt Date: 20150601
  Transmission Date: 20150821
  Serious: No
  Sender: FDA-Public Use
  Company Number: PR 9681

PATIENT
  Age: 89 Year
  Sex: Female

DRUGS (2)
  1. COSOPT [Suspect]
     Active Substance: DORZOLAMIDE HYDROCHLORIDE\TIMOLOL MALEATE
     Indication: GLAUCOMA
     Dates: start: 2012, end: 20150501
  2. LUMIGAN (BIMATOPROST) [Concomitant]

REACTIONS (4)
  - Dyspnoea [None]
  - Rash [None]
  - Rash papular [None]
  - Hip surgery [None]

NARRATIVE: CASE EVENT DATE: 2014
